FAERS Safety Report 6689446-9 (Version None)
Quarter: 2010Q2

REPORT INFORMATION
  Report Type: 
  Country: None (occurrence: None)
  Receive Date: 20100421
  Receipt Date: 20100412
  Transmission Date: 20101027
  Serious: Yes (Hospitalization)
  Sender: FDA-Public Use
  Company Number: US-BIOGENIDEC-2009BI001826

PATIENT
  Age: 29 Year
  Sex: Female

DRUGS (4)
  1. AVONEX [Suspect]
     Indication: MULTIPLE SCLEROSIS
     Route: 030
     Dates: start: 20070316, end: 20090106
  2. VICODIN [Concomitant]
     Indication: PAIN
  3. VERAPAMIL [Concomitant]
     Indication: SUPRAVENTRICULAR TACHYCARDIA
  4. DIGOXIN [Concomitant]
     Indication: SUPRAVENTRICULAR TACHYCARDIA

REACTIONS (2)
  - CONVERSION DISORDER [None]
  - MULTIPLE SCLEROSIS [None]
